FAERS Safety Report 25299997 (Version 1)
Quarter: 2025Q2

REPORT INFORMATION
  Report Type: Spontaneous
  Country: US (occurrence: US)
  Receive Date: 20250512
  Receipt Date: 20250512
  Transmission Date: 20250716
  Serious: Yes (Other)
  Sender: BAYER HEALTHCARE LLC
  Company Number: US-BAYER-2025A062819

PATIENT

DRUGS (1)
  1. AFRIN NO DRIP ORIGINAL PUMP MIST [Suspect]
     Active Substance: OXYMETAZOLINE HYDROCHLORIDE
     Indication: Sinus congestion
     Dates: start: 1970

REACTIONS (3)
  - Drug dependence [Recovered/Resolved]
  - Product use in unapproved indication [None]
  - Product prescribing issue [None]
